FAERS Safety Report 13087498 (Version 2)
Quarter: 2017Q1

REPORT INFORMATION
  Report Type: Spontaneous
  Country: GB (occurrence: GB)
  Receive Date: 20170105
  Receipt Date: 20170224
  Transmission Date: 20170428
  Serious: Yes (Life-Threatening, Hospitalization)
  Sender: FDA-Public Use
  Company Number: GB-AUROBINDO-AUR-APL-2016-15997

PATIENT

DRUGS (4)
  1. ATORVASTATIN 20 MG [Suspect]
     Active Substance: ATORVASTATIN
     Indication: HYPERLIPIDAEMIA
     Dosage: 20 MG, UNK
     Route: 048
     Dates: start: 20160809, end: 20161123
  2. GLICLAZIDE 80 MG [Suspect]
     Active Substance: GLICLAZIDE
     Indication: TYPE 2 DIABETES MELLITUS
     Dosage: 80 MG, ONCE A DAY
     Route: 048
     Dates: start: 20160809, end: 20161123
  3. LIRAGLUTIDE [Suspect]
     Active Substance: LIRAGLUTIDE
     Indication: TYPE 2 DIABETES MELLITUS
     Dosage: 0.6 MG, ONCE A DAY
     Route: 003
     Dates: start: 20160826, end: 20161123
  4. METFORMIN 500MG [Suspect]
     Active Substance: METFORMIN HYDROCHLORIDE
     Indication: TYPE 2 DIABETES MELLITUS
     Dosage: 500 MG, ONCE A DAY
     Route: 048
     Dates: start: 20160726, end: 20161123

REACTIONS (4)
  - Liver function test abnormal [Recovering/Resolving]
  - Malaise [Unknown]
  - Influenza like illness [Unknown]
  - Drug-induced liver injury [Not Recovered/Not Resolved]

NARRATIVE: CASE EVENT DATE: 20161123
